FAERS Safety Report 9313357 (Version 1)
Quarter: 2013Q2

REPORT INFORMATION
  Report Type: Spontaneous
  Country: US (occurrence: US)
  Receive Date: 20130528
  Receipt Date: 20130528
  Transmission Date: 20140414
  Serious: No
  Sender: FDA-Public Use
  Company Number: US-ABBOTT-13P-163-1051167-00

PATIENT
  Sex: Female
  Weight: 79.45 kg

DRUGS (1)
  1. ANDROGEL STICK PACK 2.5G [Suspect]
     Indication: LIBIDO DECREASED

REACTIONS (1)
  - Off label use [Unknown]
